FAERS Safety Report 16304500 (Version 2)
Quarter: 2019Q3

REPORT INFORMATION
  Report Type: Spontaneous
  Country: US (occurrence: US)
  Receive Date: 20190513
  Receipt Date: 20190702
  Transmission Date: 20191004
  Serious: No
  Sender: FDA-Public Use
  Company Number: US-PFIZER INC-2019198374

PATIENT
  Age: 40 Year
  Sex: Female
  Weight: 88.45 kg

DRUGS (3)
  1. LYRICA [Suspect]
     Active Substance: PREGABALIN
     Indication: SYSTEMIC LUPUS ERYTHEMATOSUS
  2. LYRICA [Suspect]
     Active Substance: PREGABALIN
     Indication: EPICONDYLITIS
     Dosage: 150 MG, 2X/DAY
     Route: 048
     Dates: start: 201904
  3. LYRICA [Suspect]
     Active Substance: PREGABALIN
     Indication: RHEUMATOID ARTHRITIS
     Dosage: 75 MG, 2X/DAY
     Route: 048
     Dates: start: 201904

REACTIONS (5)
  - Off label use [Unknown]
  - Irritability [Unknown]
  - Restlessness [Unknown]
  - Product use in unapproved indication [Unknown]
  - Insomnia [Recovered/Resolved]

NARRATIVE: CASE EVENT DATE: 201904
